FAERS Safety Report 16530516 (Version 2)
Quarter: 2019Q3

REPORT INFORMATION
  Report Type: Spontaneous
  Country: US (occurrence: US)
  Receive Date: 20190704
  Receipt Date: 20190731
  Transmission Date: 20191004
  Serious: Yes (Hospitalization, Other)
  Sender: FDA-Public Use
  Company Number: US-TEVA-2019-US-1070452

PATIENT
  Age: 67 Year
  Sex: Female

DRUGS (4)
  1. CAPECITABINE. [Suspect]
     Active Substance: CAPECITABINE
     Indication: ADJUVANT THERAPY
     Dosage: SECOND CYCLE WAS 1000 MG/M 2 TWICE DAILY FOR 14 DAYS
     Route: 065
  2. CARBOPLATIN. [Suspect]
     Active Substance: CARBOPLATIN
     Indication: ADENOCARCINOMA GASTRIC
     Route: 065
  3. CARBOPLATIN. [Suspect]
     Active Substance: CARBOPLATIN
     Indication: ADJUVANT THERAPY
  4. CAPECITABINE. [Suspect]
     Active Substance: CAPECITABINE
     Indication: ADENOCARCINOMA GASTRIC
     Dosage: FIRST CYCLE AT 1000MG/M2 TWICE DAILY FOR 14 DAYS
     Route: 065

REACTIONS (10)
  - Hepatic steatosis [Unknown]
  - Lethargy [Unknown]
  - Hyperammonaemia [Recovered/Resolved]
  - Encephalopathy [Unknown]
  - Muscular weakness [Not Recovered/Not Resolved]
  - Weight decreased [Recovering/Resolving]
  - Decreased appetite [Recovering/Resolving]
  - Ataxia [Unknown]
  - Delirium [Unknown]
  - Confusional state [Recovered/Resolved]
